FAERS Safety Report 7290675-4 (Version None)
Quarter: 2011Q1

REPORT INFORMATION
  Report Type: 
  Country: None (occurrence: None)
  Receive Date: 20110214
  Receipt Date: 20110202
  Transmission Date: 20110831
  Serious: Yes (Other)
  Sender: FDA-Public Use
  Company Number: FR-SANOFI-AVENTIS-2011SA007249

PATIENT
  Age: 60 Year
  Sex: Female

DRUGS (8)
  1. NISIS [Concomitant]
     Route: 048
  2. NOVORAPID [Concomitant]
     Route: 058
  3. MULTAQ [Suspect]
     Indication: ATRIAL FIBRILLATION
     Route: 048
     Dates: start: 20101101, end: 20110111
  4. TAHOR [Concomitant]
     Route: 048
  5. BISOPROLOL [Concomitant]
     Route: 048
  6. HEMIGOXINE NATIVELLE [Concomitant]
     Route: 048
  7. INSULIN DETEMIR [Concomitant]
     Route: 058
  8. ASPIRIN [Concomitant]
     Route: 048

REACTIONS (3)
  - HYPONATRAEMIA [None]
  - ASPARTATE AMINOTRANSFERASE INCREASED [None]
  - ATRIAL FIBRILLATION [None]
